FAERS Safety Report 14465662 (Version 2)
Quarter: 2018Q1

REPORT INFORMATION
  Report Type: Report from Study
  Country: None (occurrence: US)
  Receive Date: 20180131
  Receipt Date: 20180222
  Transmission Date: 20180509
  Serious: Yes (Hospitalization, Other)
  Sender: FDA-Public Use
  Company Number: US-ABBVIE-18K-163-2235806-00

PATIENT
  Age: 70 Year
  Sex: Male
  Weight: 82.63 kg

DRUGS (5)
  1. VITAMIN B12 [Concomitant]
     Active Substance: CYANOCOBALAMIN
     Indication: VITAMIN SUPPLEMENTATION
  2. HUMIRA [Suspect]
     Active Substance: ADALIMUMAB
     Indication: CROHN^S DISEASE
     Route: 058
     Dates: start: 20171222, end: 20171222
  3. HUMIRA [Suspect]
     Active Substance: ADALIMUMAB
     Route: 058
     Dates: start: 20180105, end: 20180105
  4. HUMIRA [Suspect]
     Active Substance: ADALIMUMAB
     Route: 058
     Dates: start: 20180119
  5. PROBIOTIC [Concomitant]
     Active Substance: PROBIOTICS NOS
     Indication: GASTROINTESTINAL DISORDER

REACTIONS (9)
  - Fatigue [Recovering/Resolving]
  - Haematochezia [Recovering/Resolving]
  - Clostridium difficile infection [Recovering/Resolving]
  - Abdominal pain [Recovering/Resolving]
  - Malaise [Not Recovered/Not Resolved]
  - Blood iron decreased [Recovering/Resolving]
  - Colitis [Unknown]
  - Hypotension [Recovering/Resolving]
  - Dehydration [Recovered/Resolved]

NARRATIVE: CASE EVENT DATE: 2018
